FAERS Safety Report 7521981-3 (Version None)
Quarter: 2011Q2

REPORT INFORMATION
  Report Type: 
  Country: None (occurrence: None)
  Receive Date: 20110603
  Receipt Date: 20110526
  Transmission Date: 20111010
  Serious: Yes (Hospitalization)
  Sender: FDA-Public Use
  Company Number: DK-NOVOPROD-329088

PATIENT
  Age: 85 Year
  Sex: Male

DRUGS (2)
  1. INSULATARD [Suspect]
     Dosage: 70 IU TWICE DAILY
     Dates: start: 20100101
  2. INSULATARD [Suspect]
     Indication: TYPE 2 DIABETES MELLITUS
     Dosage: 32 IU, QD

REACTIONS (2)
  - PULMONARY EMBOLISM [None]
  - DRUG INEFFECTIVE [None]
